FAERS Safety Report 9822630 (Version 2)
Quarter: 2014Q1

REPORT INFORMATION
  Report Type: Spontaneous
  Country: US (occurrence: US)
  Receive Date: 20140116
  Receipt Date: 20140219
  Transmission Date: 20141002
  Serious: Yes (Hospitalization)
  Sender: FDA-Public Use
  Company Number: US-BIOGENIDEC-2014BI004209

PATIENT
  Age: 55 Year
  Sex: Female

DRUGS (1)
  1. TYSABRI [Suspect]
     Indication: MULTIPLE SCLEROSIS
     Route: 042
     Dates: start: 20101027

REACTIONS (6)
  - Brain operation [Recovered/Resolved]
  - Cough [Recovered/Resolved]
  - Dysarthria [Recovered/Resolved]
  - Cerebral haemorrhage [Recovered/Resolved]
  - Thrombosis [Recovered/Resolved]
  - Nasopharyngitis [Recovered/Resolved]
